FAERS Safety Report 18155750 (Version 3)
Quarter: 2020Q4

REPORT INFORMATION
  Report Type: Spontaneous
  Country: US (occurrence: US)
  Receive Date: 20200817
  Receipt Date: 20201028
  Transmission Date: 20210113
  Serious: Yes (Other)
  Sender: FDA-Public Use
  Company Number: US-JNJFOC-20200816403

PATIENT
  Age: 8 Decade
  Sex: Male

DRUGS (1)
  1. BENGAY ULTRA STRENGTH PAIN RELIEVING [Suspect]
     Active Substance: CAMPHOR (SYNTHETIC)\MENTHOL\METHYL SALICYLATE
     Indication: ARTHRALGIA
     Dosage: STARTED 30 DAYS AGO
     Route: 061
     Dates: start: 202009, end: 2020

REACTIONS (3)
  - Loss of consciousness [Recovered/Resolved]
  - Palpitations [Unknown]
  - Dyspnoea [Recovered/Resolved]
